FAERS Safety Report 18096125 (Version 1)
Quarter: 2020Q3

REPORT INFORMATION
  Report Type: Spontaneous
  Country: CA (occurrence: CA)
  Receive Date: 20200731
  Receipt Date: 20200731
  Transmission Date: 20201103
  Serious: Yes (Hospitalization, Other)
  Sender: FDA-Public Use
  Company Number: CA-AUROBINDO-AUR-APL-2020-037037

PATIENT
  Sex: Male
  Weight: 85 kg

DRUGS (10)
  1. QUETIAPINE. [Suspect]
     Active Substance: QUETIAPINE
     Indication: PSYCHOTIC DISORDER
     Dosage: 200 MILLIGRAM, AS NECESSARY
     Route: 065
  2. QUETIAPINE. [Interacting]
     Active Substance: QUETIAPINE
     Dosage: 700 MILLIGRAM, ONCE A DAY
     Route: 065
  3. PHENYTOIN. [Interacting]
     Active Substance: PHENYTOIN
     Indication: SEIZURE
     Dosage: 600 MILLIGRAM, ONCE A DAY
     Route: 065
  4. PROPRANOLOL [Concomitant]
     Active Substance: PROPRANOLOL HYDROCHLORIDE
     Indication: HYPERTENSION
     Dosage: 80 MILLIGRAM, ONCE A DAY
     Route: 065
  5. GEMFIBROZIL. [Concomitant]
     Active Substance: GEMFIBROZIL
     Indication: PRODUCT USED FOR UNKNOWN INDICATION
     Dosage: 12 MILLIGRAM, ONCE A DAY
     Route: 065
  6. DIAZEPAM. [Interacting]
     Active Substance: DIAZEPAM
     Dosage: 30 MILLIGRAM, ONCE A DAY
     Route: 065
  7. CARBAMAZEPINE. [Interacting]
     Active Substance: CARBAMAZEPINE
     Indication: SEIZURE
     Dosage: 200 MILLIGRAM, ONCE A DAY
     Route: 065
  8. VALPROIC ACID. [Interacting]
     Active Substance: VALPROIC ACID
     Indication: SEIZURE
     Dosage: 1500 MILLIGRAM, ONCE A DAY
     Route: 048
  9. TEMAZEPAM. [Concomitant]
     Active Substance: TEMAZEPAM
     Indication: SEIZURE
     Dosage: UNK, AS NECESSARY
     Route: 065
  10. DIAZEPAM. [Interacting]
     Active Substance: DIAZEPAM
     Indication: SEIZURE
     Dosage: 30 MILLIGRAM, ONCE A DAY
     Route: 048

REACTIONS (2)
  - Drug interaction [Recovering/Resolving]
  - Drug level below therapeutic [Recovering/Resolving]
